FAERS Safety Report 17428091 (Version 3)
Quarter: 2020Q2

REPORT INFORMATION
  Report Type: Report from Study
  Country: AU (occurrence: AU)
  Receive Date: 20200217
  Receipt Date: 20200421
  Transmission Date: 20200713
  Serious: Yes (Other)
  Sender: FDA-Public Use
  Company Number: AU-SHIRE-AU202004394

PATIENT

DRUGS (1)
  1. TEDUGLUTIDE [Suspect]
     Active Substance: TEDUGLUTIDE
     Indication: PRODUCT USED FOR UNKNOWN INDICATION
     Dosage: 0.38 MILLILITER, 1X/DAY:QD
     Route: 058

REACTIONS (15)
  - Insomnia [Unknown]
  - Nausea [Unknown]
  - Nephrolithiasis [Unknown]
  - Vomiting [Unknown]
  - Disturbance in attention [Unknown]
  - Stress [Unknown]
  - Intestinal obstruction [Unknown]
  - Asthenia [Unknown]
  - Needle issue [Unknown]
  - Pain [Unknown]
  - Headache [Unknown]
  - Product use complaint [Unknown]
  - Choking [Unknown]
  - Injection site pain [Unknown]
  - Product leakage [Unknown]

NARRATIVE: CASE EVENT DATE: 20200212
